FAERS Safety Report 15369430 (Version 2)
Quarter: 2019Q1

REPORT INFORMATION
  Report Type: Spontaneous
  Country: FR (occurrence: FR)
  Receive Date: 20180911
  Receipt Date: 20190328
  Transmission Date: 20190417
  Serious: Yes (Death, Hospitalization, Other)
  Sender: FDA-Public Use
  Company Number: FR-AUROBINDO-AUR-APL-2018-044892

PATIENT

DRUGS (4)
  1. PREGABALIN. [Suspect]
     Active Substance: PREGABALIN
     Indication: ANALGESIC INTERVENTION SUPPORTIVE THERAPY
     Dosage: 50 MILLIGRAM, ONCE A DAY
     Route: 048
     Dates: end: 20180808
  2. LINEZOLID ARROW [Suspect]
     Active Substance: LINEZOLID
     Indication: OSTEITIS
     Dosage: 1200 MILLIGRAM, ONCE A DAY
     Route: 048
     Dates: start: 20180720
  3. CEFOXITINE PANPHARMA [Suspect]
     Active Substance: CEFOXITIN SODIUM
     Indication: OSTEITIS
     Dosage: 6 GRAM, 1 WEEK (2G MONDAY, WEDNESDAY, FRIDAY)
     Route: 042
     Dates: start: 20180720
  4. REVLIMID [Suspect]
     Active Substance: LENALIDOMIDE
     Indication: AMYLOIDOSIS
     Dosage: 7.5 MILLIGRAM, ONCE A DAY,7.5 MG / DAY (21 DAYS OUT OF 28)
     Route: 048
     Dates: start: 2016

REACTIONS (1)
  - Jaundice cholestatic [Fatal]

NARRATIVE: CASE EVENT DATE: 20180725
